FAERS Safety Report 14007576 (Version 1)
Quarter: 2017Q3

REPORT INFORMATION
  Report Type: Spontaneous
  Country: US (occurrence: US)
  Receive Date: 20170925
  Receipt Date: 20170925
  Transmission Date: 20171128
  Serious: Yes (Other)
  Sender: FDA-Public Use
  Company Number: US-MALLINCKRODT-T201703784

PATIENT
  Age: 70 Year
  Sex: Male

DRUGS (3)
  1. FENTANYL TRANSDERMAL SYSTEM [Suspect]
     Active Substance: FENTANYL
     Indication: PAIN
     Dosage: 25 MCG/HR (15 YEARS AGO)
     Route: 062
  2. PAXIL [Concomitant]
     Active Substance: PAROXETINE HYDROCHLORIDE
     Indication: PRODUCT USED FOR UNKNOWN INDICATION
  3. FENTANYL TRANSDERMAL SYSTEM [Suspect]
     Active Substance: FENTANYL
     Indication: SPINAL DEFORMITY
     Dosage: 50 MCG/HR (INCREASED SOMETIME YEARS AGO)
     Route: 062

REACTIONS (4)
  - Myocardial infarction [Unknown]
  - Anxiety [Unknown]
  - Drug dependence [Unknown]
  - Muscle spasms [Unknown]
